FAERS Safety Report 7830794-4 (Version None)
Quarter: 2011Q4

REPORT INFORMATION
  Report Type: 
  Country: None (occurrence: None)
  Receive Date: 20111021
  Receipt Date: 20111017
  Transmission Date: 20120403
  Serious: Yes (Hospitalization)
  Sender: FDA-Public Use
  Company Number: US-GLAXOSMITHKLINE-A0949351A

PATIENT
  Age: 73 Year
  Sex: Female

DRUGS (14)
  1. THEOPHYLLINE-SR [Concomitant]
  2. UNKNOWN MEDICATION [Concomitant]
  3. GLIPIZIDE [Concomitant]
  4. SPIRIVA [Concomitant]
  5. XOPENEX [Concomitant]
  6. HYDRALAZINE HCL [Concomitant]
  7. NAPROXEN [Concomitant]
  8. DIAZEPAM [Concomitant]
  9. AMLODIPINE BESYLATE [Concomitant]
  10. ASPIRIN [Concomitant]
  11. PAROXETINE HCL [Concomitant]
  12. LIPITOR [Concomitant]
  13. ADVAIR DISKUS 100/50 [Suspect]
     Indication: CHRONIC OBSTRUCTIVE PULMONARY DISEASE
     Dosage: 1PUFF TWICE PER DAY
     Route: 055
     Dates: start: 20060101
  14. PERCOCET [Concomitant]

REACTIONS (4)
  - PNEUMONIA [None]
  - CARDIO-RESPIRATORY ARREST [None]
  - RIB FRACTURE [None]
  - FALL [None]
